FAERS Safety Report 8237089-8 (Version None)
Quarter: 2012Q1

REPORT INFORMATION
  Report Type: 
  Country: None (occurrence: None)
  Receive Date: 20120327
  Receipt Date: 20120321
  Transmission Date: 20120608
  Serious: Yes (Hospitalization)
  Sender: FDA-Public Use
  Company Number: JP-EISAI INC-E2090-01787-SPO-JP

PATIENT
  Age: 19 Year
  Sex: Male

DRUGS (11)
  1. CLINDAMYCIN [Concomitant]
  2. VANCOMYCIN HYDROCHLORIDE [Concomitant]
     Dosage: UNKNOWN
  3. LAC-B [Concomitant]
     Dosage: UNKNOWN
  4. ZONISAMIDE [Suspect]
     Route: 048
     Dates: start: 20110630, end: 20111013
  5. PHENOBARBITAL TAB [Concomitant]
     Dosage: UNKNOWN
  6. HISHIPHAGEN-C [Concomitant]
     Dosage: UNKNOWN
  7. ZONISAMIDE [Suspect]
     Indication: EPILEPSY
     Route: 048
     Dates: start: 20110527, end: 20110629
  8. LOXOMARIN [Concomitant]
     Dosage: UNKNOWN
  9. LANSOPRAZOLE [Concomitant]
     Dosage: 30 MG
  10. FAMOTIDINE [Concomitant]
     Dosage: UNKNOWN
  11. PHENYTOIN SODIUM CAP [Concomitant]
     Dosage: UNKNOWN

REACTIONS (1)
  - CALCULUS BLADDER [None]
